FAERS Safety Report 17083941 (Version 1)
Quarter: 2020Q3

REPORT INFORMATION
  Report Type: Spontaneous
  Country: GB (occurrence: GB)
  Receive Date: 20191127
  Receipt Date: 20191127
  Transmission Date: 20201105
  Serious: Yes (Other)
  Sender: FDA-Public Use
  Company Number: NVSC2019GB044178

PATIENT
  Age: 35 Year
  Sex: Female

DRUGS (2)
  1. FINGOLIMOD. [Suspect]
     Active Substance: FINGOLIMOD
     Indication: PRODUCT USED FOR UNKNOWN INDICATION
     Dosage: UNK
     Route: 065
  2. BETAFERON [Suspect]
     Active Substance: INTERFERON BETA-1B
     Indication: MULTIPLE SCLEROSIS
     Dosage: UNK
     Route: 065

REACTIONS (5)
  - Multiple sclerosis relapse [Not Recovered/Not Resolved]
  - Migraine [Unknown]
  - Hypoaesthesia [Not Recovered/Not Resolved]
  - Gait inability [Not Recovered/Not Resolved]
  - Hypoaesthesia oral [Not Recovered/Not Resolved]

NARRATIVE: CASE EVENT DATE: 201909
